FAERS Safety Report 8191784-8 (Version None)
Quarter: 2012Q1

REPORT INFORMATION
  Report Type: 
  Country: None (occurrence: None)
  Receive Date: 20120307
  Receipt Date: 20120222
  Transmission Date: 20120608
  Serious: Yes (Other)
  Sender: FDA-Public Use
  Company Number: CHPA2012US003390

PATIENT
  Age: 21 Year
  Sex: Female

DRUGS (1)
  1. TRIAMINIC THIN STRIPS-COUGH AND RUNNY NOSE [Suspect]
     Indication: COUGH
     Dosage: 2 DF, QD
     Route: 048
     Dates: start: 20120220, end: 20120221

REACTIONS (3)
  - LIP SWELLING [None]
  - NASAL OEDEMA [None]
  - SWELLING FACE [None]
